FAERS Safety Report 6615563-5 (Version None)
Quarter: 2010Q1

REPORT INFORMATION
  Report Type: 
  Country: None (occurrence: None)
  Receive Date: 20100305
  Receipt Date: 20100226
  Transmission Date: 20100710
  Serious: Yes (Death)
  Sender: FDA-Public Use
  Company Number: JP-BAYER-201010209BYL

PATIENT
  Age: 74 Year
  Sex: Male
  Weight: 57 kg

DRUGS (7)
  1. NEXAVAR [Suspect]
     Indication: HEPATIC NEOPLASM MALIGNANT
     Dosage: TOTAL DAILY DOSE: 800 MG  UNIT DOSE: 200 MG
     Route: 048
     Dates: start: 20091224
  2. NEXAVAR [Suspect]
     Dosage: UNIT DOSE: 200 MG
     Route: 048
     Dates: start: 20100108, end: 20100112
  3. URSO 250 [Concomitant]
     Indication: HEPATITIS C
     Route: 048
     Dates: start: 20060705, end: 20100112
  4. LIVACT [Concomitant]
     Indication: HEPATIC CIRRHOSIS
     Route: 048
     Dates: start: 20060705, end: 20100112
  5. BLOPRESS [Concomitant]
     Indication: HYPERTENSION
     Route: 048
     Dates: start: 20091224, end: 20100112
  6. HYPEN [Concomitant]
     Indication: CANCER PAIN
     Route: 048
     Dates: start: 20091224, end: 20100112
  7. GASTER D [Concomitant]
     Indication: CANCER PAIN
     Route: 048
     Dates: start: 20091224, end: 20100112

REACTIONS (3)
  - HEPATIC FAILURE [None]
  - PALMAR-PLANTAR ERYTHRODYSAESTHESIA SYNDROME [None]
  - PLEURAL HAEMORRHAGE [None]
